FAERS Safety Report 11009320 (Version 2)
Quarter: 2015Q2

REPORT INFORMATION
  Report Type: Report from Study
  Country: US (occurrence: US)
  Receive Date: 20150410
  Receipt Date: 20150522
  Transmission Date: 20150821
  Serious: Yes (Other)
  Sender: FDA-Public Use
  Company Number: US-SA-2015SA044205

PATIENT
  Age: 39 Year
  Sex: Male

DRUGS (1)
  1. FABRAZYME [Suspect]
     Active Substance: AGALSIDASE BETA
     Indication: FABRY^S DISEASE
     Dosage: FREQUENCY: Q2
     Route: 042
     Dates: start: 20051205

REACTIONS (3)
  - Proteinuria [Unknown]
  - Arrhythmia [Unknown]
  - Cardiac hypertrophy [Unknown]

NARRATIVE: CASE EVENT DATE: 201504
